FAERS Safety Report 6581734-X (Version None)
Quarter: 2010Q1

REPORT INFORMATION
  Report Type: 
  Country: None (occurrence: None)
  Receive Date: 20100215
  Receipt Date: 20100203
  Transmission Date: 20100710
  Serious: Yes (Other)
  Sender: FDA-Public Use
  Company Number: PHHY2010CY03185

PATIENT
  Sex: Male
  Weight: 80 kg

DRUGS (3)
  1. ZOMETA [Suspect]
     Indication: METASTASES TO BONE
     Dosage: 4 MG, QMO
     Route: 042
     Dates: start: 20090819, end: 20091130
  2. EVEROLIMUS [Concomitant]
     Dosage: 10 MG, ONCE A DAY
     Dates: start: 20090901, end: 20091123
  3. FENTANYL-100 [Concomitant]
     Dosage: 125 EVERY 3 DAYS
     Route: 061

REACTIONS (4)
  - ERYTHEMA [None]
  - OSTEONECROSIS [None]
  - PAIN IN JAW [None]
  - SWELLING [None]
